FAERS Safety Report 9843180 (Version 1)
Quarter: 2013Q4

REPORT INFORMATION
  Report Type: Spontaneous
  Country: US (occurrence: None)
  Receive Date: 20131219
  Receipt Date: 20131219
  Transmission Date: 20140711
  Serious: Yes (Other)
  Sender: FDA-Public Use
  Company Number: 163-20785-13023560

PATIENT
  Age: 29 Year
  Sex: Male

DRUGS (7)
  1. THALOMID (THALIDOMIDE) (CAPSULES) [Suspect]
     Indication: TYPE 2 LEPRA REACTION
     Dosage: 28 IN 28 D,
     Route: 048
     Dates: start: 20121219
  2. OMEPRAZOLE(OMEPRAZOLE) (UNKNOWN) [Concomitant]
  3. CLOFAZIMINE(CLOFAZIMINE)(UNKNOWN) [Concomitant]
  4. DAPSONE(DAPSONE) (UNKNOWN) [Concomitant]
  5. MINOCYCLINE(MINOCYCLINE)(UNKNOWN) [Concomitant]
  6. PREDNISONE(PREDNISONE)(UNKNOWN) [Concomitant]
  7. VITAMIN D/CALCIUM(CALCIUM D3 ^STADA^)(UNKNOWN) [Concomitant]

REACTIONS (2)
  - Convulsion [None]
  - Incorrect dose administered [None]
